FAERS Safety Report 6537542-9 (Version None)
Quarter: 2010Q1

REPORT INFORMATION
  Report Type: 
  Country: None (occurrence: None)
  Receive Date: 20100114
  Receipt Date: 20100104
  Transmission Date: 20100710
  Serious: Yes (Other)
  Sender: FDA-Public Use
  Company Number: GB-ELI_LILLY_AND_COMPANY-GB201001000351

PATIENT
  Age: 76 Year
  Sex: Female

DRUGS (6)
  1. ZYPREXA [Suspect]
     Dosage: 10 MG, EACH EVENING
  2. PARACETAMOL [Concomitant]
  3. MEDROXYPROGESTERONE [Concomitant]
  4. VALPROATE SODIUM [Concomitant]
  5. SENNA [Concomitant]
  6. ASPIRIN [Concomitant]

REACTIONS (2)
  - RENAL FAILURE [None]
  - RHABDOMYOLYSIS [None]
